FAERS Safety Report 6377890-9 (Version None)
Quarter: 2009Q3

REPORT INFORMATION
  Report Type: 
  Country: None (occurrence: None)
  Receive Date: 20090925
  Receipt Date: 20090915
  Transmission Date: 20100115
  Serious: Yes (Other)
  Sender: FDA-Public Use
  Company Number: PHEH2009US10986

PATIENT
  Sex: Female

DRUGS (5)
  1. DIOVAN HCT [Suspect]
     Dosage: 160/12.5 MG, DAILY
  2. TOPROL-XL [Suspect]
     Dosage: 50 MG, BID
  3. NORVASC [Suspect]
     Dosage: 10 MG, QD
  4. CARTIA XT [Suspect]
     Dosage: 360 MG, UNK
  5. CARTIA XT [Suspect]
     Dosage: 160 MG, UNK

REACTIONS (4)
  - ASTHENIA [None]
  - HEADACHE [None]
  - HEART RATE IRREGULAR [None]
  - MULTI-ORGAN DISORDER [None]
